FAERS Safety Report 6822920-0 (Version None)
Quarter: 2010Q3

REPORT INFORMATION
  Report Type: 
  Country: None (occurrence: None)
  Receive Date: 20100708
  Receipt Date: 20100623
  Transmission Date: 20110219
  Serious: Yes (Other)
  Sender: FDA-Public Use
  Company Number: GB-CUBIST-2010S1000559

PATIENT
  Age: 82 Year
  Sex: Male

DRUGS (4)
  1. CUBICIN [Suspect]
     Indication: ENTEROCOCCAL INFECTION
  2. CUBICIN [Suspect]
  3. GENTAMICIN [Concomitant]
     Indication: ENDOCARDITIS
  4. LINEZOLID [Suspect]
     Indication: PRODUCT USED FOR UNKNOWN INDICATION

REACTIONS (7)
  - ANTIMICROBIAL SUSCEPTIBILITY TEST RESISTANT [None]
  - AORTIC VALVE STENOSIS [None]
  - ARTHRITIS BACTERIAL [None]
  - BLOOD DISORDER [None]
  - ENDOCARDITIS [None]
  - PATHOGEN RESISTANCE [None]
  - THROMBOCYTOPENIA [None]
